FAERS Safety Report 12701657 (Version 3)
Quarter: 2016Q3

REPORT INFORMATION
  Report Type: Spontaneous
  Country: US (occurrence: US)
  Receive Date: 20160831
  Receipt Date: 20160922
  Transmission Date: 20161109
  Serious: Yes (Death, Hospitalization)
  Sender: FDA-Public Use
  Company Number: US-UNITED THERAPEUTICS-UNT-2016-013666

PATIENT
  Age: 75 Year
  Sex: Male
  Weight: 81.63 kg

DRUGS (1)
  1. REMODULIN [Suspect]
     Active Substance: TREPROSTINIL
     Indication: PULMONARY ARTERIAL HYPERTENSION
     Dosage: 0.127 ?G/KG, CONTINUING
     Route: 058
     Dates: start: 20120314

REACTIONS (1)
  - Fall [Fatal]

NARRATIVE: CASE EVENT DATE: 20160825
